FAERS Safety Report 19809489 (Version 2)
Quarter: 2021Q4

REPORT INFORMATION
  Report Type: Spontaneous
  Country: JP (occurrence: JP)
  Receive Date: 20210908
  Receipt Date: 20211013
  Transmission Date: 20220303
  Serious: Yes (Hospitalization)
  Sender: FDA-Public Use
  Company Number: JP-MALLINCKRODT PHARMACEUTICALS-T202104044

PATIENT
  Age: 9 Decade
  Sex: Female

DRUGS (7)
  1. AMITIZA [Suspect]
     Active Substance: LUBIPROSTONE
     Indication: Product used for unknown indication
     Dosage: 24 MICROGRAM, DAILY
     Route: 065
  2. SHAKUYAKUKANZOTO [Suspect]
     Active Substance: HERBALS
     Indication: Pain in extremity
     Dosage: 7.5 GRAM, DAILY
     Route: 048
  3. AZOSEMIDE [Suspect]
     Active Substance: AZOSEMIDE
     Indication: Cardiac failure
     Dosage: 30 MILLIGRAM, DAILY
     Route: 065
  4. TRICHLORMETHIAZIDE [Suspect]
     Active Substance: TRICHLORMETHIAZIDE
     Indication: Cardiac failure
     Dosage: 1 MILLIGRAM, DAILY
     Route: 065
  5. SPIRONOLACTONE [Concomitant]
     Active Substance: SPIRONOLACTONE
     Indication: Product used for unknown indication
     Dosage: 25 MILLIGRAM, DAILY
     Route: 065
  6. CANDESARTAN [Concomitant]
     Active Substance: CANDESARTAN
     Indication: Product used for unknown indication
     Dosage: 4 MILLIGRAM, DAILY
     Route: 065
  7. SUVOREXANT [Concomitant]
     Active Substance: SUVOREXANT
     Indication: Product used for unknown indication
     Dosage: 15 MILLIGRAM, DAILY
     Route: 065

REACTIONS (2)
  - Cardiac failure [Unknown]
  - Pseudoaldosteronism [Recovering/Resolving]
